FAERS Safety Report 23906532 (Version 1)
Quarter: 2024Q2

REPORT INFORMATION
  Report Type: Spontaneous
  Country: US (occurrence: US)
  Receive Date: 20240528
  Receipt Date: 20240528
  Transmission Date: 20240716
  Serious: No
  Sender: FDA-Public Use
  Company Number: US-TAKEDA-2024TUS048314

PATIENT
  Age: 76 Year
  Sex: Male
  Weight: 77 kg

DRUGS (5)
  1. NINLARO [Suspect]
     Active Substance: IXAZOMIB CITRATE
     Indication: Plasma cell myeloma
     Dosage: 4 MILLIGRAM
     Route: 065
     Dates: start: 202401
  2. TRAMADOL [Concomitant]
     Active Substance: TRAMADOL\TRAMADOL HYDROCHLORIDE
     Indication: Pain
     Dosage: UNK
     Route: 065
  3. ACYCLOVIR [Concomitant]
     Active Substance: ACYCLOVIR
     Indication: Herpes zoster
     Dosage: 400 MILLIGRAM
     Route: 065
  4. AMITRIPTYLINE [Concomitant]
     Active Substance: AMITRIPTYLINE
     Indication: Feeling of relaxation
     Dosage: 50 MILLIGRAM
     Route: 065
  5. DARATUMUMAB [Concomitant]
     Active Substance: DARATUMUMAB
     Dosage: UNK
     Route: 065

REACTIONS (5)
  - Asthenia [Unknown]
  - Exposure to toxic agent [Unknown]
  - Feeling abnormal [Unknown]
  - Nausea [Unknown]
  - Product temperature excursion issue [Unknown]

NARRATIVE: CASE EVENT DATE: 20240515
